FAERS Safety Report 8914410 (Version 1)
Quarter: 2012Q4

REPORT INFORMATION
  Report Type: 
  Country: US (occurrence: US)
  Receive Date: 20121118
  Receipt Date: 20121118
  Transmission Date: 20130627
  Serious: No
  Sender: FDA-Public Use
  Company Number: US-ASTRAZENECA-2012SE83910

PATIENT
  Age: 33 Year
  Sex: Female

DRUGS (2)
  1. SEROQUEL XR [Suspect]
     Indication: BIPOLAR I DISORDER
     Route: 048
  2. SEROQUEL XR [Suspect]
     Indication: MENTAL DISABILITY
     Route: 048

REACTIONS (3)
  - Adverse event [Unknown]
  - Drug withdrawal syndrome [Unknown]
  - Drug dose omission [Unknown]
